FAERS Safety Report 16386403 (Version 2)
Quarter: 2019Q2

REPORT INFORMATION
  Report Type: Not Available
  Country: US (occurrence: US)
  Receive Date: 20190603
  Receipt Date: 20190627
  Transmission Date: 20190711
  Serious: No
  Sender: FDA-Public Use
  Company Number: US-NEUROCRINE BIOSCIENCES INC.-2019NBI01338

PATIENT
  Sex: Male

DRUGS (5)
  1. INGREZZA [Suspect]
     Active Substance: VALBENAZINE
     Indication: TARDIVE DYSKINESIA
     Route: 048
     Dates: start: 20170815, end: 20190503
  2. ZYPREXA [Concomitant]
     Active Substance: OLANZAPINE
     Route: 048
  3. ZYPREXA [Concomitant]
     Active Substance: OLANZAPINE
     Route: 048
  4. LITHIUM. [Concomitant]
     Active Substance: LITHIUM
     Route: 048
  5. KLONOPIN [Concomitant]
     Active Substance: CLONAZEPAM

REACTIONS (1)
  - Asthenia [Recovered/Resolved]
